FAERS Safety Report 4576400-6 (Version None)
Quarter: 2005Q1

REPORT INFORMATION
  Report Type: 
  Country: None (occurrence: None)
  Receive Date: 20050207
  Receipt Date: 20050126
  Transmission Date: 20050727
  Serious: No
  Sender: FDA-Public Use
  Company Number: 2005GB00195

PATIENT
  Age: 79 Year
  Sex: Female
  Weight: 46.5 kg

DRUGS (5)
  1. ARIMIDEX [Suspect]
     Indication: BREAST CANCER
     Dosage: 1 MG QD PO
     Route: 048
     Dates: start: 19980813, end: 20030921
  2. SIMVASTATIN [Concomitant]
  3. AMLODIPINE [Concomitant]
  4. ASPIRIN [Concomitant]
  5. ACETAMINOPHEN [Concomitant]

REACTIONS (4)
  - GLOMERULONEPHRITIS FOCAL [None]
  - KIDNEY SMALL [None]
  - PROTEINURIA [None]
  - RENAL IMPAIRMENT [None]
